FAERS Safety Report 8026130-3 (Version None)
Quarter: 2012Q1

REPORT INFORMATION
  Report Type: 
  Country: None (occurrence: None)
  Receive Date: 20120105
  Receipt Date: 20110712
  Transmission Date: 20120608
  Serious: No
  Sender: FDA-Public Use
  Company Number: US-ABBOTT-11P-163-0838502-00

PATIENT
  Sex: Male
  Weight: 74.91 kg

DRUGS (11)
  1. SYNTHROID [Suspect]
     Indication: HYPOTHYROIDISM
     Dates: start: 20061101, end: 20070201
  2. GLUCOSAMINE SUPPLEMENT [Concomitant]
     Indication: PRODUCT USED FOR UNKNOWN INDICATION
  3. CONDROITIN SUPPLEMENT [Concomitant]
     Indication: PRODUCT USED FOR UNKNOWN INDICATION
  4. SYNTHROID [Suspect]
     Indication: HYPOTHYROIDISM
     Dates: start: 20070201, end: 20070301
  5. SYNTHROID [Suspect]
     Dates: start: 20080201, end: 20101201
  6. ASPIRIN [Concomitant]
     Indication: PRODUCT USED FOR UNKNOWN INDICATION
  7. MULTI-VITAMIN [Concomitant]
     Indication: VITAMIN SUPPLEMENTATION
  8. SYNTHROID [Suspect]
     Indication: HYPOTHYROIDISM
     Dates: start: 20071101, end: 20080201
  9. SYNTHROID [Suspect]
     Dates: start: 20070301, end: 20071101
  10. SYNTHROID [Suspect]
     Indication: HYPOTHYROIDISM
     Dates: start: 20070301, end: 20071101
  11. SYNTHROID [Suspect]
     Dates: start: 20101201

REACTIONS (2)
  - WEIGHT INCREASED [None]
  - BLOOD THYROID STIMULATING HORMONE ABNORMAL [None]
